FAERS Safety Report 14156186 (Version 1)
Quarter: 2017Q4

REPORT INFORMATION
  Report Type: Spontaneous
  Country: GB (occurrence: GB)
  Receive Date: 20171103
  Receipt Date: 20171103
  Transmission Date: 20180321
  Serious: Yes (Life-Threatening)
  Sender: FDA-Public Use
  Company Number: GB-B.I. PHARMACEUTICALS,INC./RIDGEFIELD-2017-16-000121

PATIENT
  Age: 64 Year
  Sex: Male

DRUGS (1)
  1. JARDIANCE [Suspect]
     Active Substance: EMPAGLIFLOZIN
     Indication: DIABETES MELLITUS
     Route: 048
     Dates: start: 20170310, end: 20170316

REACTIONS (5)
  - Abdominal pain upper [Unknown]
  - Headache [Unknown]
  - Pollakiuria [Unknown]
  - Diabetic ketoacidosis [Recovered/Resolved]
  - Thirst [Unknown]

NARRATIVE: CASE EVENT DATE: 20170310
